FAERS Safety Report 9461431 (Version 1)
Quarter: 2013Q3

REPORT INFORMATION
  Report Type: Spontaneous
  Country: US (occurrence: None)
  Receive Date: 20130814
  Receipt Date: 20130814
  Transmission Date: 20140515
  Serious: No
  Sender: FDA-Public Use
  Company Number: None

PATIENT
  Age: 67 Year
  Sex: Female
  Weight: 72.58 kg

DRUGS (1)
  1. CETACAINE TOPICAL ANESTHETIC [Suspect]
     Indication: PAIN
     Dates: start: 20130812, end: 20130812

REACTIONS (1)
  - Glossodynia [None]
